FAERS Safety Report 4465243-X (Version None)
Quarter: 2004Q3

REPORT INFORMATION
  Report Type: 
  Country: None (occurrence: None)
  Receive Date: 20040929
  Receipt Date: 20040921
  Transmission Date: 20050211
  Serious: Yes (Hospitalization)
  Sender: FDA-Public Use
  Company Number: BDI-006491

PATIENT
  Sex: Female

DRUGS (3)
  1. RENOGRAFIN-60 [Suspect]
     Indication: PAIN
     Dosage: 5 ML ONCE; IT
     Route: 038
     Dates: start: 20040915, end: 20040915
  2. RENOGRAFIN-60 [Suspect]
     Indication: THERAPEUTIC PROCEDURE
     Dosage: 5 ML ONCE; IT
     Route: 038
     Dates: start: 20040915, end: 20040915
  3. CAFFEINE [Concomitant]

REACTIONS (7)
  - BURNING SENSATION [None]
  - DYSKINESIA [None]
  - MEDICATION ERROR [None]
  - MUSCLE SPASMS [None]
  - MUSCLE TWITCHING [None]
  - PAIN IN EXTREMITY [None]
  - PROCEDURAL COMPLICATION [None]
